FAERS Safety Report 21073474 (Version 1)
Quarter: 2022Q3

REPORT INFORMATION
  Report Type: Spontaneous
  Country: QA (occurrence: QA)
  Receive Date: 20220713
  Receipt Date: 20220713
  Transmission Date: 20221027
  Serious: Yes (Life-Threatening, Hospitalization)
  Sender: FDA-Public Use
  Company Number: QA-STRIDES ARCOLAB LIMITED-2022SP008593

PATIENT
  Age: 18 Year
  Sex: Male

DRUGS (1)
  1. METRONIDAZOLE [Suspect]
     Active Substance: METRONIDAZOLE
     Indication: Product used for unknown indication
     Dosage: 200 MILLIGRAM, (30 TABLETS OF 200 MG METRONIDAZOLE IN THE MORNING AT AROUND 0900 HOURS)
     Route: 048

REACTIONS (3)
  - Ventricular fibrillation [Recovered/Resolved]
  - Suicide attempt [Unknown]
  - Overdose [Unknown]
